FAERS Safety Report 8916522 (Version 1)
Quarter: 2012Q4

REPORT INFORMATION
  Report Type: 
  Country: US (occurrence: US)
  Receive Date: 20121120
  Receipt Date: 20121120
  Transmission Date: 20130627
  Serious: No
  Sender: FDA-Public Use
  Company Number: US-009507513-1211USA006199

PATIENT
  Sex: Male

DRUGS (1)
  1. DULERA [Suspect]
     Indication: ASTHMA
     Dosage: frequency: 2 puffs at morning and 2 puffs at night
     Route: 055

REACTIONS (2)
  - Blood glucose decreased [Recovering/Resolving]
  - Feeling abnormal [Recovering/Resolving]
